FAERS Safety Report 6891016-4 (Version None)
Quarter: 2010Q3

REPORT INFORMATION
  Report Type: 
  Country: None (occurrence: None)
  Receive Date: 20100731
  Receipt Date: 20090512
  Transmission Date: 20110219
  Serious: No
  Sender: FDA-Public Use
  Company Number: US-PFIZER INC-2004058174

PATIENT
  Sex: Male
  Weight: 61 kg

DRUGS (24)
  1. LIPITOR [Suspect]
     Indication: DIABETES MELLITUS
     Route: 048
     Dates: start: 19980101
  2. LIPITOR [Suspect]
     Indication: BLOOD CHOLESTEROL INCREASED
  3. LESCOL [Suspect]
     Indication: ILL-DEFINED DISORDER
     Route: 048
     Dates: start: 19980101
  4. ALTACE [Concomitant]
     Route: 065
  5. VITAMIN A [Concomitant]
     Route: 065
  6. SELENIUM [Concomitant]
     Route: 065
  7. ZINC [Concomitant]
     Route: 065
  8. CALCIUM [Concomitant]
     Route: 065
  9. BRAN [Concomitant]
     Route: 065
  10. KELP [Concomitant]
     Route: 065
  11. VITAMIN B6 [Concomitant]
     Route: 065
  12. LECITHIN [Concomitant]
     Route: 065
  13. APPLE CIDER VINEGAR [Concomitant]
     Route: 065
  14. COENZYME Q10 [Concomitant]
     Route: 065
  15. LYCOPENE [Concomitant]
     Route: 065
  16. ALL OTHER THERAPEUTIC PRODUCTS [Concomitant]
     Route: 065
  17. CRANBERRY [Concomitant]
     Route: 065
  18. ALL OTHER THERAPEUTIC PRODUCTS [Concomitant]
     Route: 065
  19. VITAMIN B [Concomitant]
     Route: 065
  20. ASCORBIC ACID [Concomitant]
     Route: 065
  21. VITAMIN D [Concomitant]
     Route: 065
  22. VITAMIN E [Concomitant]
     Route: 065
  23. VITAMINS [Concomitant]
     Dosage: UNK
  24. MINERAL TAB [Concomitant]
     Dosage: UNK

REACTIONS (13)
  - ABDOMINAL DISCOMFORT [None]
  - ABDOMINAL PAIN UPPER [None]
  - ARTHRALGIA [None]
  - ASPARTATE AMINOTRANSFERASE INCREASED [None]
  - BACK PAIN [None]
  - BLOOD TRIGLYCERIDES DECREASED [None]
  - DRUG INEFFECTIVE [None]
  - FEELING ABNORMAL [None]
  - FLATULENCE [None]
  - HEPATIC ENZYME INCREASED [None]
  - HIGH DENSITY LIPOPROTEIN DECREASED [None]
  - TENDONITIS [None]
  - WRONG TECHNIQUE IN DRUG USAGE PROCESS [None]
